FAERS Safety Report 5525315-5 (Version None)
Quarter: 2007Q4

REPORT INFORMATION
  Report Type: 
  Country: None (occurrence: None)
  Receive Date: 20071120
  Receipt Date: 20071113
  Transmission Date: 20080405
  Serious: Yes (Other)
  Sender: FDA-Public Use
  Company Number: S07-USA-05926-01

PATIENT
  Age: 14 Year
  Sex: Male

DRUGS (4)
  1. CELEXA [Suspect]
     Indication: OBSESSIVE-COMPULSIVE DISORDER
     Dosage: 50 MG QD PO
     Route: 048
     Dates: end: 20071111
  2. CELEXA [Suspect]
     Indication: OBSESSIVE-COMPULSIVE DISORDER
     Dosage: 40 MG QD PO
     Route: 048
     Dates: start: 20071112
  3. CELEXA [Suspect]
     Indication: OBSESSIVE-COMPULSIVE DISORDER
     Dosage: 10 MG QD PO
     Route: 048
     Dates: start: 20050101, end: 20050101
  4. CELEXA [Suspect]
     Indication: OBSESSIVE-COMPULSIVE DISORDER
     Dates: start: 20050101

REACTIONS (1)
  - DEAFNESS [None]
